FAERS Safety Report 25451723 (Version 1)
Quarter: 2025Q2

REPORT INFORMATION
  Report Type: Spontaneous
  Country: US (occurrence: US)
  Receive Date: 20250618
  Receipt Date: 20250618
  Transmission Date: 20250717
  Serious: No
  Sender: SANOFI AVENTIS
  Company Number: US-SA-2025SA171208

PATIENT
  Age: 74 Year

DRUGS (1)
  1. CAMPATH [Suspect]
     Active Substance: ALEMTUZUMAB

REACTIONS (1)
  - Infusion related reaction [Unknown]
